FAERS Safety Report 8469649-3 (Version None)
Quarter: 2012Q2

REPORT INFORMATION
  Report Type: 
  Country: None (occurrence: None)
  Receive Date: 20120626
  Receipt Date: 20120614
  Transmission Date: 20120825
  Serious: Yes (Hospitalization)
  Sender: FDA-Public Use
  Company Number: PHHO2012DE008911

PATIENT
  Age: 49 Year
  Sex: Male
  Weight: 74 kg

DRUGS (3)
  1. TACROLIMUS [Suspect]
     Indication: PANCREAS TRANSPLANT
     Dosage: 4 MG, BID
     Route: 048
     Dates: start: 20120123
  2. PREDNISOLONE [Suspect]
     Indication: PANCREAS TRANSPLANT
     Dosage: 10 MG, QD
     Route: 048
     Dates: start: 20120123
  3. MYCOPHENOLIC ACID [Suspect]
     Indication: PANCREAS TRANSPLANT
     Dosage: 720 MG, BID
     Route: 048
     Dates: start: 20120312

REACTIONS (2)
  - URINARY TRACT INFECTION [None]
  - PANCREAS TRANSPLANT REJECTION [None]
